FAERS Safety Report 25966920 (Version 1)
Quarter: 2025Q4

REPORT INFORMATION
  Report Type: Spontaneous
  Country: US (occurrence: None)
  Receive Date: 20251028
  Receipt Date: 20251028
  Transmission Date: 20260118
  Serious: No
  Sender: ENCUBE ETHICALS PVT. LTD.
  Company Number: US-Encube-002533

PATIENT
  Age: 14 Year
  Sex: Male

DRUGS (1)
  1. KETOCONAZOLE [Suspect]
     Active Substance: KETOCONAZOLE
     Indication: Tinea versicolour
     Dosage: FOR TWO WEEKS
     Dates: start: 202503, end: 202504

REACTIONS (3)
  - Hair colour changes [Not Recovered/Not Resolved]
  - Vitiligo [Not Recovered/Not Resolved]
  - Application site discolouration [Not Recovered/Not Resolved]

NARRATIVE: CASE EVENT DATE: 20250101
